FAERS Safety Report 19312858 (Version 1)
Quarter: 2021Q2

REPORT INFORMATION
  Report Type: Spontaneous
  Country: US (occurrence: US)
  Receive Date: 20210526
  Receipt Date: 20210526
  Transmission Date: 20210717
  Serious: No
  Sender: FDA-Public Use
  Company Number: None

PATIENT
  Age: 51 Year
  Sex: Female

DRUGS (1)
  1. AMBRISENTAN 5 MG TABLETS [Suspect]
     Active Substance: AMBRISENTAN
     Indication: PULMONARY HYPERTENSION
     Route: 048
     Dates: start: 20200519

REACTIONS (2)
  - Haematocrit decreased [None]
  - Haemoglobin decreased [None]

NARRATIVE: CASE EVENT DATE: 20210522
